FAERS Safety Report 11528343 (Version 4)
Quarter: 2016Q1

REPORT INFORMATION
  Report Type: Report from Study
  Country: US (occurrence: US)
  Receive Date: 20150921
  Receipt Date: 20160218
  Transmission Date: 20160525
  Serious: No
  Sender: FDA-Public Use
  Company Number: PHEH2015US017889

PATIENT
  Sex: Female
  Weight: 58.96 kg

DRUGS (1)
  1. GILENYA [Suspect]
     Active Substance: FINGOLIMOD HYDROCHLORIDE
     Indication: MULTIPLE SCLEROSIS
     Dosage: 0.5 MG, QD
     Route: 048
     Dates: start: 20150915

REACTIONS (8)
  - Arthralgia [Not Recovered/Not Resolved]
  - Hypoaesthesia [Recovered/Resolved]
  - Musculoskeletal stiffness [Not Recovered/Not Resolved]
  - Gait disturbance [Recovered/Resolved]
  - Dysstasia [Recovered/Resolved]
  - Feeling abnormal [Not Recovered/Not Resolved]
  - Ataxia [Recovered/Resolved]
  - Asthenia [Recovered/Resolved]
